FAERS Safety Report 9616857 (Version 2)
Quarter: 2013Q4

REPORT INFORMATION
  Report Type: Spontaneous
  Country: FR (occurrence: FR)
  Receive Date: 20131011
  Receipt Date: 20131022
  Transmission Date: 20140711
  Serious: Yes (Other)
  Sender: FDA-Public Use
  Company Number: FR-PFIZER INC-2013285955

PATIENT
  Age: 77 Year
  Sex: Female

DRUGS (5)
  1. CADUET [Suspect]
     Indication: HYPERTENSION
     Dosage: 10 MG, 2X/DAY
     Route: 048
     Dates: start: 2011
  2. BISOPROLOL FUMARATE [Suspect]
     Indication: HYPERTENSION
     Dosage: UNK
     Route: 048
  3. METFORMIN HCL [Suspect]
     Indication: TYPE 2 DIABETES MELLITUS
     Dosage: 500 MG, 1X/DAY
     Route: 048
  4. TRIVASTAL [Suspect]
     Indication: PARKINSON^S DISEASE
     Dosage: UNK
     Route: 048
     Dates: start: 2003
  5. MODOPAR [Suspect]
     Indication: PARKINSON^S DISEASE
     Dosage: UNK
     Dates: start: 2003

REACTIONS (2)
  - Alveolitis [Recovered/Resolved]
  - Interstitial lung disease [Unknown]
